FAERS Safety Report 5155981-8 (Version None)
Quarter: 2006Q4

REPORT INFORMATION
  Report Type: 
  Country: None (occurrence: None)
  Receive Date: 20061122
  Receipt Date: 20061115
  Transmission Date: 20070319
  Serious: Yes (Hospitalization)
  Sender: FDA-Public Use
  Company Number: JP-BAYER-200615821GDS

PATIENT
  Age: 61 Year
  Sex: Female

DRUGS (4)
  1. DACARBAZINE [Suspect]
     Indication: MALIGNANT MELANOMA STAGE IV
     Route: 065
  2. CISPLATIN [Suspect]
     Indication: MALIGNANT MELANOMA STAGE IV
     Route: 065
  3. NIMUSTINE HYDROCHLORIDE [Suspect]
     Indication: MALIGNANT MELANOMA STAGE IV
     Route: 065
  4. TAMOXIFEN CITRATE [Suspect]
     Indication: MALIGNANT MELANOMA STAGE IV
     Route: 065

REACTIONS (7)
  - ACUTE MYOCARDIAL INFARCTION [None]
  - CHEST PAIN [None]
  - CORONARY ARTERY OCCLUSION [None]
  - CORONARY ARTERY THROMBOSIS [None]
  - ELECTROCARDIOGRAM ST SEGMENT DEPRESSION [None]
  - ELECTROCARDIOGRAM ST SEGMENT ELEVATION [None]
  - VENTRICULAR HYPOKINESIA [None]
